FAERS Safety Report 5600471-9 (Version None)
Quarter: 2008Q1

REPORT INFORMATION
  Report Type: 
  Country: None (occurrence: None)
  Receive Date: 20080123
  Receipt Date: 20080111
  Transmission Date: 20080703
  Serious: Yes (Hospitalization, Other)
  Sender: FDA-Public Use
  Company Number: US-BAYER-200810157BCC

PATIENT
  Age: 73 Year
  Sex: Female
  Weight: 67 kg

DRUGS (10)
  1. ONE A DAY WOMEN'S TABLET [Suspect]
     Indication: VITAMIN SUPPLEMENTATION
     Route: 048
  2. ASPIRIN [Suspect]
     Indication: DRUG USE FOR UNKNOWN INDICATION
  3. CELEBREX [Concomitant]
     Route: 065
  4. NORVASC [Concomitant]
  5. PREMARIN (PREMARINA) [Concomitant]
  6. LYRICA [Concomitant]
     Route: 065
  7. COREG [Concomitant]
     Route: 065
  8. NEXIUM (ESOMPRAZOLE MAGNESIUM) [Concomitant]
     Route: 065
  9. FUROSEMIDE [Concomitant]
     Route: 065
  10. GENERIC CALCIUM PLUS D [Concomitant]

REACTIONS (4)
  - ABDOMINAL PAIN UPPER [None]
  - COELIAC DISEASE [None]
  - DIARRHOEA [None]
  - RENAL FAILURE [None]
